FAERS Safety Report 10589546 (Version 1)
Quarter: 2014Q4

REPORT INFORMATION
  Report Type: Spontaneous
  Country: US (occurrence: None)
  Receive Date: 20141114
  Receipt Date: 20141114
  Transmission Date: 20150529
  Serious: Yes (Other)
  Sender: FDA-Public Use
  Company Number: 2014-US-014530

PATIENT
  Age: 34 Year
  Sex: Female

DRUGS (8)
  1. VIVACTIL (PROTRIPTYLINE HYDROCHLORIDE) [Concomitant]
  2. RITALIN (METHYLPHENIDATE HYDROCHLORIDE) [Concomitant]
     Active Substance: METHYLPHENIDATE HYDROCHLORIDE
  3. REGLAN (METOCLOPRAMIDE HYDROCHLORIDE) [Concomitant]
  4. YAZ (DROSPIRENONE, ETHINYLESTRADIOL BETADEX CLATHRATE) [Concomitant]
  5. CAMILA (NORETHISTERONE) [Concomitant]
  6. RITALIN SR (METHYLPHENIDATE HYDROCHLORIDE) [Concomitant]
  7. XYREM [Suspect]
     Active Substance: SODIUM OXYBATE
     Indication: NARCOLEPSY
     Route: 048
     Dates: start: 200611, end: 2007
  8. LEVOTHYROXINE [Suspect]
     Active Substance: LEVOTHYROXINE
     Indication: HYPOTHYROIDISM
     Dates: start: 201403

REACTIONS (6)
  - Autoimmune thyroiditis [None]
  - Stress [None]
  - Hypothyroidism [None]
  - Fatigue [None]
  - Tachyphrenia [None]
  - Malaise [None]

NARRATIVE: CASE EVENT DATE: 201403
